FAERS Safety Report 17239141 (Version 1)
Quarter: 2019Q4

REPORT INFORMATION
  Report Type: Spontaneous
  Country: US (occurrence: US)
  Receive Date: 20191211
  Receipt Date: 20191211
  Transmission Date: 20200122
  Serious: Yes (Hospitalization)
  Sender: FDA-Public Use
  Company Number: None

PATIENT
  Age: 38 Year
  Sex: Female

DRUGS (9)
  1. ALBUTEROL. [Concomitant]
     Active Substance: ALBUTEROL
  2. ZENPEP [Concomitant]
     Active Substance: PANCRELIPASE AMYLASE\PANCRELIPASE LIPASE\PANCRELIPASE PROTEASE
  3. TYLENOL [Concomitant]
     Active Substance: ACETAMINOPHEN
  4. SOD CHLORIDE 7% [Suspect]
     Active Substance: SODIUM CHLORIDE
     Indication: CYSTIC FIBROSIS
     Dosage: ?          OTHER DOSE:L VIAL;OTHER ROUTE:INHALED?
     Route: 055
     Dates: start: 20131226
  5. FLUTICASONE NASAL [Concomitant]
     Active Substance: FLUTICASONE
  6. PULMOZYME [Concomitant]
     Active Substance: DORNASE ALFA
  7. TRIKAFTA [Concomitant]
     Active Substance: ELEXACAFTOR\IVACAFTOR\TEZACAFTOR
  8. CAYSTON [Concomitant]
     Active Substance: AZTREONAM
  9. MULTIPLE VIT [Concomitant]

REACTIONS (1)
  - Condition aggravated [None]

NARRATIVE: CASE EVENT DATE: 2019
